FAERS Safety Report 7978938-8 (Version None)
Quarter: 2011Q4

REPORT INFORMATION
  Report Type: 
  Country: None (occurrence: None)
  Receive Date: 20111214
  Receipt Date: 20111206
  Transmission Date: 20120403
  Serious: Yes (Other)
  Sender: FDA-Public Use
  Company Number: US-US-EMD SERONO, INC.-7099298

PATIENT
  Sex: Female

DRUGS (1)
  1. REBIF [Suspect]
     Indication: MULTIPLE SCLEROSIS
     Route: 058
     Dates: start: 20021014

REACTIONS (7)
  - THORACIC VERTEBRAL FRACTURE [None]
  - TENDONITIS [None]
  - BURSITIS [None]
  - ROAD TRAFFIC ACCIDENT [None]
  - MUSCLE SPASMS [None]
  - HIP ARTHROPLASTY [None]
  - SPINAL LAMINECTOMY [None]
